FAERS Safety Report 13994148 (Version 2)
Quarter: 2018Q2

REPORT INFORMATION
  Report Type: Not Available
  Country: US (occurrence: US)
  Receive Date: 20170920
  Receipt Date: 20180418
  Transmission Date: 20180711
  Serious: No
  Sender: FDA-Public Use
  Company Number: US-NEUROCRINE BIOSCIENCES INC.-2017NBI00518

PATIENT
  Age: 81 Year
  Sex: Female

DRUGS (53)
  1. AZELASTINE. [Concomitant]
     Active Substance: AZELASTINE HYDROCHLORIDE
     Route: 045
     Dates: end: 20161102
  2. DOXEPIN [Concomitant]
     Active Substance: DOXEPIN
     Dosage: AT BEDTIME
     Dates: start: 20150710, end: 20160722
  3. GABAPENTIN. [Concomitant]
     Active Substance: GABAPENTIN
     Dates: start: 20161220, end: 20170101
  4. INVEGA [Concomitant]
     Active Substance: PALIPERIDONE
     Dosage: 1.5 MG EVERY OTHER DAY
     Dates: start: 20180115
  5. VITAMIN B12 [Concomitant]
     Active Substance: CYANOCOBALAMIN
     Dosage: 1/2 TABLET QD
  6. DOXEPIN [Concomitant]
     Active Substance: DOXEPIN
     Dosage: AT BEDTIME
     Dates: start: 20170105, end: 20170125
  7. HALDOL [Concomitant]
     Active Substance: HALOPERIDOL
     Route: 048
     Dates: start: 20110923, end: 20111020
  8. HALDOL [Concomitant]
     Active Substance: HALOPERIDOL
     Dosage: ON MONDAY, WEDNESDAY AND FRIDAY
     Route: 048
     Dates: start: 20160607, end: 20160705
  9. HYDROXYZINE HCL [Concomitant]
     Active Substance: HYDROXYZINE HYDROCHLORIDE
     Dates: start: 20140211, end: 20141008
  10. PROAIR HFA [Concomitant]
     Active Substance: ALBUTEROL SULFATE
     Dates: end: 20161102
  11. RESERPINE. [Concomitant]
     Active Substance: RESERPINE
     Dosage: AT BEDTIME
     Dates: start: 20161130, end: 20161201
  12. DOXEPIN [Concomitant]
     Active Substance: DOXEPIN
     Dosage: AT BEDTIME
     Dates: start: 20111020, end: 20131023
  13. FLUOXETINE [Concomitant]
     Active Substance: FLUOXETINE HYDROCHLORIDE
     Dates: start: 20120202, end: 20130604
  14. HALDOL [Concomitant]
     Active Substance: HALOPERIDOL
     Dosage: AT BEDTIME
     Route: 048
     Dates: start: 20111020, end: 20120202
  15. LORAZEPAM. [Concomitant]
     Active Substance: LORAZEPAM
     Dosage: PRN BID
     Dates: start: 20160722, end: 20160809
  16. LORAZEPAM. [Concomitant]
     Active Substance: LORAZEPAM
     Dosage: PRN BID
     Dates: start: 20160825, end: 20161001
  17. OXCARBAZEPINE. [Concomitant]
     Active Substance: OXCARBAZEPINE
     Dosage: QHS
     Dates: start: 20111114, end: 20111215
  18. SPIRIVA [Concomitant]
     Active Substance: TIOTROPIUM BROMIDE MONOHYDRATE
     Dates: end: 20161101
  19. DOXEPIN [Concomitant]
     Active Substance: DOXEPIN
     Dosage: AT BEDTIME
     Dates: start: 20131023, end: 20141008
  20. PSYLLIUM [Concomitant]
     Active Substance: PLANTAGO SEED
     Dates: end: 20141108
  21. BISACODYL. [Concomitant]
     Active Substance: BISACODYL
  22. LOPERAMIDE [Concomitant]
     Active Substance: LOPERAMIDE
  23. BENICAR HCT [Concomitant]
     Active Substance: HYDROCHLOROTHIAZIDE\OLMESARTAN MEDOXOMIL
  24. NORCO [Concomitant]
     Active Substance: ACETAMINOPHEN\HYDROCODONE BITARTRATE
     Dosage: 5/325 Q4H PRN
  25. TOPROL XL [Concomitant]
     Active Substance: METOPROLOL SUCCINATE
  26. ARIPIPRAZOLE. [Concomitant]
     Active Substance: ARIPIPRAZOLE
     Dates: start: 20160809, end: 20160901
  27. ACETAMINOPHEN. [Concomitant]
     Active Substance: ACETAMINOPHEN
  28. HALDOL [Concomitant]
     Active Substance: HALOPERIDOL
     Dosage: AT BEDTIME
     Route: 048
     Dates: end: 20110923
  29. PRISTIQ EXTENDED-RELEASE [Concomitant]
     Active Substance: DESVENLAFAXINE SUCCINATE
     Dates: start: 20111114, end: 20120202
  30. SERTRALINE [Concomitant]
     Active Substance: SERTRALINE HYDROCHLORIDE
     Dates: start: 20130604, end: 20130702
  31. INGREZZA [Suspect]
     Active Substance: VALBENAZINE
     Indication: TARDIVE DYSKINESIA
     Route: 048
     Dates: start: 20170630, end: 201707
  32. INGREZZA [Suspect]
     Active Substance: VALBENAZINE
     Route: 048
     Dates: start: 201707, end: 20170726
  33. MULTIVITAMINS WITH MINERALS [Concomitant]
     Active Substance: MINERALS\VITAMINS
  34. SINGULAIR [Concomitant]
     Active Substance: MONTELUKAST SODIUM
  35. HALDOL [Concomitant]
     Active Substance: HALOPERIDOL
     Dosage: AT BEDTIME
     Route: 048
     Dates: start: 20160329, end: 20160426
  36. HALDOL [Concomitant]
     Active Substance: HALOPERIDOL
     Route: 048
     Dates: start: 20140910, end: 20160329
  37. HYDROXYZINE HCL [Concomitant]
     Active Substance: HYDROXYZINE HYDROCHLORIDE
     Dates: start: 20141008, end: 20160722
  38. PRISTIQ EXTENDED-RELEASE [Concomitant]
     Active Substance: DESVENLAFAXINE SUCCINATE
     Dates: end: 20111114
  39. INGREZZA [Suspect]
     Active Substance: VALBENAZINE
     Route: 048
     Dates: start: 20170727
  40. INVEGA [Concomitant]
     Active Substance: PALIPERIDONE
     Dates: start: 20170105, end: 20171130
  41. INVEGA [Concomitant]
     Active Substance: PALIPERIDONE
     Dates: start: 20171130, end: 20180115
  42. TRAZODONE [Concomitant]
     Active Substance: TRAZODONE HYDROCHLORIDE
     Dosage: AT BEDTIME
     Dates: start: 20170125
  43. DOXEPIN [Concomitant]
     Active Substance: DOXEPIN
     Dosage: AT BEDTIME
     Dates: start: 20141008, end: 20150612
  44. OXCARBAZEPINE. [Concomitant]
     Active Substance: OXCARBAZEPINE
     Dosage: QAM AND QHS
     Dates: end: 20111114
  45. SERTRALINE [Concomitant]
     Active Substance: SERTRALINE HYDROCHLORIDE
     Dates: start: 20130702, end: 20130727
  46. ZOLPIDEM [Concomitant]
     Active Substance: ZOLPIDEM\ZOLPIDEM TARTRATE
     Dates: start: 20150612, end: 20150701
  47. ALOE [Concomitant]
     Active Substance: ALOE
  48. AMLODIPINE [Concomitant]
     Active Substance: AMLODIPINE BESYLATE
  49. KLOR-CON [Concomitant]
     Active Substance: POTASSIUM CHLORIDE
     Route: 048
  50. HALDOL [Concomitant]
     Active Substance: HALOPERIDOL
     Route: 048
     Dates: start: 20140305, end: 20140910
  51. HALDOL [Concomitant]
     Active Substance: HALOPERIDOL
     Route: 048
     Dates: start: 20140910, end: 20160329
  52. MSM [Concomitant]
     Active Substance: DIMETHYL SULFONE
     Dates: end: 20141008
  53. RESERPINE. [Concomitant]
     Active Substance: RESERPINE
     Dates: start: 20161102, end: 20161103

REACTIONS (1)
  - Musculoskeletal stiffness [Recovered/Resolved]

NARRATIVE: CASE EVENT DATE: 20170710
